FAERS Safety Report 23445093 (Version 1)
Quarter: 2024Q1

REPORT INFORMATION
  Report Type: Spontaneous
  Country: US (occurrence: US)
  Receive Date: 20240125
  Receipt Date: 20240125
  Transmission Date: 20240409
  Serious: No
  Sender: FDA-Public Use
  Company Number: US-OYSTER POINT PHARMA, INC-US-OYS-23-001794

PATIENT
  Age: 75 Year
  Sex: Female

DRUGS (1)
  1. TYRVAYA [Suspect]
     Active Substance: VARENICLINE TARTRATE
     Indication: Dry eye
     Dosage: UNK, TID
     Route: 045
     Dates: start: 20231129, end: 20231130

REACTIONS (4)
  - Rash [Unknown]
  - Urticaria [Unknown]
  - Periorbital pain [Unknown]
  - Periorbital irritation [Unknown]

NARRATIVE: CASE EVENT DATE: 20231130
